FAERS Safety Report 6483542-7 (Version None)
Quarter: 2009Q4

REPORT INFORMATION
  Report Type: 
  Country: None (occurrence: None)
  Receive Date: 20091208
  Receipt Date: 20091208
  Transmission Date: 20100525
  Serious: Yes (Hospitalization)
  Sender: FDA-Public Use
  Company Number: None

PATIENT
  Age: 39 Year
  Sex: Female
  Weight: 77 kg

DRUGS (2)
  1. FENTANYL-100 [Suspect]
     Indication: PAIN
     Dosage: 50 MCG OTHER TOP
     Dates: start: 20091119, end: 20091120
  2. DULOXETINE HYDROCHLORIDE [Suspect]
     Dosage: 60 MG AM PO
     Route: 048
     Dates: start: 20071121, end: 20091120

REACTIONS (4)
  - LOSS OF CONSCIOUSNESS [None]
  - PNEUMONIA ASPIRATION [None]
  - SUICIDE ATTEMPT [None]
  - VOMITING [None]
